FAERS Safety Report 23327157 (Version 2)
Quarter: 2024Q1

REPORT INFORMATION
  Report Type: Spontaneous
  Country: JP (occurrence: JP)
  Receive Date: 20231221
  Receipt Date: 20240103
  Transmission Date: 20240409
  Serious: Yes (Hospitalization, Other)
  Sender: FDA-Public Use
  Company Number: JP-PFIZER INC-202300448186

PATIENT
  Age: 23 Year
  Sex: Female

DRUGS (1)
  1. RHEUMATREX [Suspect]
     Active Substance: METHOTREXATE SODIUM
     Indication: Rheumatoid arthritis
     Dosage: UNK UNK, DAILY
     Route: 048

REACTIONS (4)
  - Malaise [Recovered/Resolved]
  - Gingival bleeding [Recovered/Resolved]
  - Myelosuppression [Recovered/Resolved]
  - Incorrect product administration duration [Unknown]
